FAERS Safety Report 8808808 (Version 1)
Quarter: 2012Q4

REPORT INFORMATION
  Report Type: Spontaneous
  Country: US (occurrence: None)
  Receive Date: 20120921
  Receipt Date: 20120921
  Transmission Date: 20130627
  Serious: No
  Sender: FDA-Public Use
  Company Number: None

PATIENT
  Age: 70 Year
  Sex: Male

DRUGS (1)
  1. CARFILZOMIB [Suspect]
     Indication: CHEMOTHERAPY
     Route: 042
     Dates: start: 20120816

REACTIONS (1)
  - Flushing [None]
